FAERS Safety Report 25682257 (Version 2)
Quarter: 2025Q3

REPORT INFORMATION
  Report Type: Spontaneous
  Country: US (occurrence: US)
  Receive Date: 20250814
  Receipt Date: 20250828
  Transmission Date: 20251021
  Serious: Yes (Death, Other)
  Sender: PFIZER
  Company Number: US-PFIZER INC-202500162317

PATIENT
  Age: 66 Year
  Sex: Male
  Weight: 81.179 kg

DRUGS (1)
  1. SOMAVERT [Suspect]
     Active Substance: PEGVISOMANT
     Indication: Acromegaly
     Dosage: 10 MG, DAILY
     Route: 058

REACTIONS (5)
  - Malignant pleural effusion [Fatal]
  - Acute respiratory failure [Fatal]
  - Cardiac arrest [Fatal]
  - Adenocarcinoma of colon [Fatal]
  - Pulmonary oedema [Fatal]

NARRATIVE: CASE EVENT DATE: 20250810
